FAERS Safety Report 18262119 (Version 3)
Quarter: 2020Q4

REPORT INFORMATION
  Report Type: Spontaneous
  Country: US (occurrence: US)
  Receive Date: 20200914
  Receipt Date: 20201118
  Transmission Date: 20210113
  Serious: No
  Sender: FDA-Public Use
  Company Number: US-JNJFOC-20200918018

PATIENT
  Age: 61 Year
  Sex: Female

DRUGS (5)
  1. PROVENTIL [Concomitant]
     Active Substance: ALBUTEROL
     Indication: ASPIRATION
     Route: 065
  2. MONTELUKAST [Concomitant]
     Active Substance: MONTELUKAST SODIUM
     Indication: ASTHMA
     Route: 065
  3. SIMPONI [Suspect]
     Active Substance: GOLIMUMAB
     Indication: PRODUCT USED FOR UNKNOWN INDICATION
     Route: 058
  4. SIMPONI [Suspect]
     Active Substance: GOLIMUMAB
  5. DULERA [Concomitant]
     Active Substance: FORMOTEROL FUMARATE DIHYDRATE\MOMETASONE FUROATE
     Indication: ASPIRATION
     Route: 065

REACTIONS (3)
  - Product packaging quantity issue [Unknown]
  - Device deployment issue [Unknown]
  - Feeling abnormal [Unknown]

NARRATIVE: CASE EVENT DATE: 202008
